FAERS Safety Report 6460890-8 (Version None)
Quarter: 2009Q4

REPORT INFORMATION
  Report Type: 
  Country: None (occurrence: None)
  Receive Date: 20091130
  Receipt Date: 20091113
  Transmission Date: 20100525
  Serious: Yes (Hospitalization)
  Sender: FDA-Public Use
  Company Number: AU-CELGENEUS-008-20785-09092182

PATIENT
  Sex: Female

DRUGS (2)
  1. THALIDOMIDE [Suspect]
     Route: 048
     Dates: start: 20081208, end: 20090513
  2. VIDAZA [Suspect]
     Route: 065
     Dates: start: 20081208, end: 20090728

REACTIONS (1)
  - PLEURAL EFFUSION [None]
